FAERS Safety Report 6833702-8 (Version None)
Quarter: 2010Q3

REPORT INFORMATION
  Report Type: 
  Country: None (occurrence: None)
  Receive Date: 20100712
  Receipt Date: 20070402
  Transmission Date: 20110219
  Serious: No
  Sender: FDA-Public Use
  Company Number: US-PFIZER INC-2007026779

PATIENT
  Sex: Female
  Weight: 40.82 kg

DRUGS (3)
  1. CHANTIX [Suspect]
     Indication: SMOKING CESSATION THERAPY
     Dates: start: 20070318, end: 20070326
  2. CIMETIDINE [Concomitant]
     Indication: GASTROOESOPHAGEAL REFLUX DISEASE
  3. ACETYLSALICYLIC ACID [Concomitant]

REACTIONS (3)
  - DIZZINESS [None]
  - FLATULENCE [None]
  - INSOMNIA [None]
